FAERS Safety Report 10102566 (Version 1)
Quarter: 2014Q2

REPORT INFORMATION
  Report Type: Spontaneous
  Country: US (occurrence: US)
  Receive Date: 20140424
  Receipt Date: 20140424
  Transmission Date: 20141212
  Serious: Yes (Other)
  Sender: FDA-Public Use
  Company Number: US-TEVA-477366USA

PATIENT
  Age: 47 Year
  Sex: Female

DRUGS (1)
  1. METFORMIN [Suspect]

REACTIONS (4)
  - Hepatic congestion [Unknown]
  - Hepatomegaly [Unknown]
  - Urinary tract infection [Unknown]
  - Abdominal pain upper [Unknown]
